FAERS Safety Report 11697630 (Version 1)
Quarter: 2015Q4

REPORT INFORMATION
  Report Type: Spontaneous
  Country: US (occurrence: US)
  Receive Date: 20151104
  Receipt Date: 20151104
  Transmission Date: 20160304
  Serious: No
  Sender: FDA-Public Use
  Company Number: US-PFIZER INC-2015366547

PATIENT
  Age: 67 Year
  Sex: Female

DRUGS (3)
  1. PEPCID AC [Concomitant]
     Active Substance: FAMOTIDINE
     Indication: URTICARIA
     Dosage: UNK
  2. MEDROL [Suspect]
     Active Substance: METHYLPREDNISOLONE
     Indication: URTICARIA
     Dosage: UNK
  3. BENADRYL [Concomitant]
     Active Substance: DIPHENHYDRAMINE HYDROCHLORIDE
     Indication: URTICARIA
     Dosage: UNK

REACTIONS (1)
  - Drug ineffective [Unknown]
